FAERS Safety Report 12633277 (Version 2)
Quarter: 2016Q3

REPORT INFORMATION
  Report Type: Spontaneous
  Country: US (occurrence: US)
  Receive Date: 20160808
  Receipt Date: 20160808
  Transmission Date: 20161109
  Serious: No
  Sender: FDA-Public Use
  Company Number: US-BEH-2016060243

PATIENT
  Sex: Female
  Weight: 60 kg

DRUGS (22)
  1. RANITIDINE. [Concomitant]
     Active Substance: RANITIDINE
  2. PLAVIX [Concomitant]
     Active Substance: CLOPIDOGREL BISULFATE
  3. SPIRIVA [Concomitant]
     Active Substance: TIOTROPIUM BROMIDE MONOHYDRATE
  4. MULTIVITAMIN [Concomitant]
     Active Substance: VITAMINS
  5. EPIPEN [Concomitant]
     Active Substance: EPINEPHRINE
  6. CYTOTEC [Concomitant]
     Active Substance: MISOPROSTOL
  7. DIPHENHYDRAMINE. [Concomitant]
     Active Substance: DIPHENHYDRAMINE
  8. LMX [Concomitant]
     Active Substance: LIDOCAINE
  9. CYMBALTA [Concomitant]
     Active Substance: DULOXETINE HYDROCHLORIDE
  10. LAMICTAL [Concomitant]
     Active Substance: LAMOTRIGINE
  11. ACIPHEX [Concomitant]
     Active Substance: RABEPRAZOLE SODIUM
  12. HIZENTRA [Suspect]
     Active Substance: HUMAN IMMUNOGLOBULIN G
     Indication: IMMUNODEFICIENCY COMMON VARIABLE
     Route: 058
  13. DEXILANT [Concomitant]
     Active Substance: DEXLANSOPRAZOLE
  14. MUCINEX [Concomitant]
     Active Substance: GUAIFENESIN
  15. LYRICA [Concomitant]
     Active Substance: PREGABALIN
  16. ZYPREXA [Concomitant]
     Active Substance: OLANZAPINE
  17. CLONAZEPAM. [Concomitant]
     Active Substance: CLONAZEPAM
  18. ADVAIR HFA [Concomitant]
     Active Substance: FLUTICASONE PROPIONATE\SALMETEROL XINAFOATE
  19. AMOXICILLIN. [Concomitant]
     Active Substance: AMOXICILLIN
  20. BUSPAR [Concomitant]
     Active Substance: BUSPIRONE HYDROCHLORIDE
  21. ZYRTEC [Concomitant]
     Active Substance: CETIRIZINE HYDROCHLORIDE
  22. SEROQUEL [Concomitant]
     Active Substance: QUETIAPINE FUMARATE

REACTIONS (1)
  - Bronchitis [Unknown]
